FAERS Safety Report 15094229 (Version 1)
Quarter: 2018Q2

REPORT INFORMATION
  Report Type: Report from Study
  Country: CO (occurrence: CO)
  Receive Date: 20180630
  Receipt Date: 20180630
  Transmission Date: 20180711
  Serious: Yes (Hospitalization, Other)
  Sender: FDA-Public Use
  Company Number: CO-UCBSA-2018028775

PATIENT
  Age: 72 Year
  Sex: Female
  Weight: 50 kg

DRUGS (4)
  1. ATORVASTATINA [Concomitant]
     Active Substance: ATORVASTATIN
     Indication: HYPOLIPIDAEMIA
     Dosage: 20 MG, ONCE DAILY (QD)
     Route: 048
  2. LACOSAMIDE. [Suspect]
     Active Substance: LACOSAMIDE
     Indication: EPILEPSY
     Dosage: 100 MG, 2X/DAY (BID)
     Route: 048
     Dates: start: 20180513
  3. TRAZODONE [Concomitant]
     Active Substance: TRAZODONE HYDROCHLORIDE
     Indication: ANTIDEPRESSANT THERAPY
     Dosage: 150 MG, ONCE DAILY (QD)
     Route: 048
  4. CLOPIDOGREL [Concomitant]
     Active Substance: CLOPIDOGREL BISULFATE
     Indication: CARDIAC FAILURE
     Dosage: 75 MG, ONCE DAILY (QD)
     Route: 048

REACTIONS (1)
  - Pulmonary oedema [Recovering/Resolving]

NARRATIVE: CASE EVENT DATE: 20180618
